FAERS Safety Report 4507994-4 (Version None)
Quarter: 2004Q4

REPORT INFORMATION
  Report Type: 
  Country: None (occurrence: None)
  Receive Date: 20041123
  Receipt Date: 20041118
  Transmission Date: 20050328
  Serious: Yes (Other)
  Sender: FDA-Public Use
  Company Number: PHBS2004BR15564

PATIENT
  Age: 84 Year
  Sex: Male

DRUGS (1)
  1. TOFRANIL [Suspect]
     Indication: URINARY TRACT DISORDER
     Route: 048

REACTIONS (1)
  - GLAUCOMA [None]
